FAERS Safety Report 9765839 (Version 1)
Quarter: 2013Q4

REPORT INFORMATION
  Report Type: Spontaneous
  Country: US (occurrence: US)
  Receive Date: 20131217
  Receipt Date: 20131217
  Transmission Date: 20140711
  Serious: No
  Sender: FDA-Public Use
  Company Number: US-GLAXOSMITHKLINE-A1011937A

PATIENT
  Age: 81 Year
  Sex: Female
  Weight: 64.5 kg

DRUGS (12)
  1. VOTRIENT [Suspect]
     Indication: PRODUCT USED FOR UNKNOWN INDICATION
     Dosage: 200MG SEE DOSAGE TEXT
     Route: 048
  2. ATENOLOL [Concomitant]
  3. HYDROCHLOROTHIAZIDE [Concomitant]
  4. CLONIDINE [Concomitant]
  5. ATORVASTATIN [Concomitant]
  6. CINNAMON [Concomitant]
  7. CHIA OIL [Concomitant]
  8. VITAMIN D [Concomitant]
  9. FLAX SEED OIL [Concomitant]
  10. CO Q10 [Concomitant]
  11. OMEGA 3 [Concomitant]
  12. AZOR (AMLODIPINE BESILATE + OLMESARTAN MEDOXOMIL) [Concomitant]

REACTIONS (1)
  - Nausea [Unknown]
